FAERS Safety Report 25882855 (Version 1)
Quarter: 2025Q4

REPORT INFORMATION
  Report Type: Spontaneous
  Country: US (occurrence: US)
  Receive Date: 20251006
  Receipt Date: 20251006
  Transmission Date: 20260118
  Serious: Yes (Hospitalization, Other)
  Sender: ROCHE
  Company Number: US-ROCHE-10000400057

PATIENT
  Age: 63 Year
  Sex: Female

DRUGS (7)
  1. MYCOPHENOLATE MOFETIL [Suspect]
     Active Substance: MYCOPHENOLATE MOFETIL
     Indication: Prophylaxis against transplant rejection
     Route: 065
  2. MYCOPHENOLATE MOFETIL [Suspect]
     Active Substance: MYCOPHENOLATE MOFETIL
     Route: 065
  3. THYMOGLOBULIN [Suspect]
     Active Substance: LAPINE T-LYMPHOCYTE IMMUNE GLOBULIN
     Indication: Prophylaxis against transplant rejection
     Dosage: 4 DOSES
     Route: 065
  4. TACROLIMUS [Suspect]
     Active Substance: TACROLIMUS
     Indication: Prophylaxis against transplant rejection
     Dosage: TARGET TROUGH 10-12 NG/ML FOR FIRST 3 MONTHS AFTER TRANSPLANT
     Route: 065
  5. TACROLIMUS [Suspect]
     Active Substance: TACROLIMUS
     Dosage: 6-8 NG/ML
     Route: 065
  6. PREDNISONE [Suspect]
     Active Substance: PREDNISONE
     Indication: Prophylaxis against transplant rejection
     Route: 065
  7. PREDNISONE [Suspect]
     Active Substance: PREDNISONE
     Dosage: THEN DOSE HAS BEEN TAPERED TO 5 MG DAILY
     Route: 065

REACTIONS (7)
  - Urinary tract infection [Unknown]
  - Klebsiella bacteraemia [Unknown]
  - Systemic candida [Unknown]
  - Acute kidney injury [Recovering/Resolving]
  - Epstein-Barr viraemia [Recovered/Resolved]
  - Diffuse large B-cell lymphoma [Unknown]
  - Post transplant lymphoproliferative disorder [Unknown]
